FAERS Safety Report 8043428-3 (Version None)
Quarter: 2012Q1

REPORT INFORMATION
  Report Type: 
  Country: None (occurrence: None)
  Receive Date: 20120112
  Receipt Date: 20120109
  Transmission Date: 20120608
  Serious: Yes (Other)
  Sender: FDA-Public Use
  Company Number: CHPA2012GB000704

PATIENT
  Age: 68 Year
  Sex: Female
  Weight: 104 kg

DRUGS (12)
  1. PIOGLITAZONE [Concomitant]
     Dosage: UNK, UNK
     Dates: start: 20110922
  2. BENDROFLUMETHIAZIDE [Concomitant]
     Dosage: UNK, UNK
     Dates: start: 20110922
  3. BUMETANIDE [Concomitant]
     Dosage: UNK, UNK
     Dates: start: 20111020
  4. METFORMIN HCL [Concomitant]
     Dosage: UNK, UNK
     Dates: start: 20110922
  5. ALBUTEROL SULFATE AUTOHALER [Concomitant]
     Dosage: UNK, UNK
     Dates: start: 20110922
  6. IBUPROFEN [Suspect]
     Dosage: UNK, UNK
     Dates: start: 20111216
  7. ATENOLOL [Concomitant]
     Dosage: UNK, UNK
     Dates: start: 20110922, end: 20111117
  8. FLUTICASONE [Concomitant]
     Dosage: UNK, UNK
     Dates: start: 20111020
  9. COLCHICINE [Concomitant]
     Dosage: UNK, UNK
     Dates: start: 20111216
  10. AMLODIPINE [Concomitant]
     Dosage: UNK, UNK
     Dates: start: 20110922
  11. RAMIPRIL [Concomitant]
     Dosage: UNK, UNK
     Dates: start: 20110922
  12. SIMVASTATIN [Concomitant]
     Dosage: UNK, UNK
     Dates: start: 20110922, end: 20111117

REACTIONS (3)
  - HAEMATEMESIS [None]
  - GASTROINTESTINAL HAEMORRHAGE [None]
  - MELAENA [None]
